FAERS Safety Report 18170357 (Version 1)
Quarter: 2020Q3

REPORT INFORMATION
  Report Type: Spontaneous
  Country: US (occurrence: US)
  Receive Date: 20200819
  Receipt Date: 20200819
  Transmission Date: 20201103
  Serious: No
  Sender: FDA-Public Use
  Company Number: US-TAKEDA-2020TUS035172

PATIENT
  Age: 26 Year
  Sex: Male

DRUGS (1)
  1. ICLUSIG [Suspect]
     Active Substance: PONATINIB
     Indication: BRAIN NEOPLASM MALIGNANT
     Dosage: UNK
     Route: 065
     Dates: start: 202007

REACTIONS (2)
  - No adverse event [Unknown]
  - Off label use [Unknown]

NARRATIVE: CASE EVENT DATE: 202007
